FAERS Safety Report 4727408-9 (Version None)
Quarter: 2005Q3

REPORT INFORMATION
  Report Type: 
  Country: None (occurrence: None)
  Receive Date: 20050727
  Receipt Date: 20050727
  Transmission Date: 20060218
  Serious: Yes (Hospitalization)
  Sender: FDA-Public Use
  Company Number: None

PATIENT
  Age: 75 Year
  Sex: Female
  Weight: 61.2356 kg

DRUGS (9)
  1. WARFARIN SODIUM [Suspect]
     Indication: ANTICOAGULANT THERAPY
     Dosage: 10 MG DAILY PO [CHRONIC]
     Route: 048
  2. ASPIRIN [Suspect]
     Indication: ATRIAL FIBRILLATION
     Dosage: 81 MG PO DAILY [CHRONIC]
     Route: 048
  3. LASIX [Concomitant]
  4. COREG [Concomitant]
  5. DIGOXIN [Concomitant]
  6. AMBIEN [Concomitant]
  7. FOLIC ACID [Concomitant]
  8. LEVOXYL [Concomitant]
  9. ATARAX [Concomitant]

REACTIONS (5)
  - COAGULOPATHY [None]
  - CONTUSION [None]
  - INCORRECT DOSE ADMINISTERED [None]
  - INTERNATIONAL NORMALISED RATIO ABNORMAL [None]
  - PROTHROMBIN TIME PROLONGED [None]
